FAERS Safety Report 5931244-5 (Version None)
Quarter: 2008Q4

REPORT INFORMATION
  Report Type: 
  Country: None (occurrence: None)
  Receive Date: 20081027
  Receipt Date: 20081017
  Transmission Date: 20090506
  Serious: Yes (Death, Other)
  Sender: FDA-Public Use
  Company Number: CA-ABBOTT-05P-028-0290115-00

PATIENT
  Sex: Female
  Weight: 73 kg

DRUGS (41)
  1. HUMIRA [Suspect]
     Indication: CROHN'S DISEASE
     Route: 058
     Dates: start: 20041203, end: 20050124
  2. AZATHIOPRINE [Concomitant]
     Indication: CROHN'S DISEASE
     Dates: start: 20020524, end: 20041015
  3. AZATHIOPRINE [Concomitant]
     Dates: start: 20041016, end: 20041117
  4. CIPROFLOXACIN [Concomitant]
     Indication: CROHN'S DISEASE
     Dates: start: 19930101, end: 20050913
  5. CIPROFLOXACIN [Concomitant]
     Indication: PROPHYLAXIS
     Dates: start: 20050620
  6. CIPROFLOXACIN [Concomitant]
     Dates: start: 20050606, end: 20050616
  7. CALCITONIN SALMON [Concomitant]
     Indication: OSTEOPOROSIS PROPHYLAXIS
     Dates: start: 19970101, end: 20050913
  8. KLIOGEST [Concomitant]
     Indication: MENOPAUSE
     Dosage: 140/50 DAILY FOR 14 DAYS
     Route: 061
     Dates: start: 20030901, end: 20050913
  9. ESTRADERM [Concomitant]
     Indication: MENOPAUSE
     Dosage: 50 DAILY FOR 14 DAYS
     Route: 061
     Dates: start: 20030901, end: 20050913
  10. ACETAMINOPHEN W/ CODEINE [Concomitant]
     Indication: ABDOMINAL PAIN
     Dates: start: 19830101, end: 20050913
  11. CYANOCOBALAMIN [Concomitant]
     Indication: VITAMIN B12 DEFICIENCY
     Dates: start: 19890101, end: 20031021
  12. CYANOCOBALAMIN [Concomitant]
     Dates: start: 20031126
  13. MULTI-VITAMINS [Concomitant]
     Indication: VITAMIN SUPPLEMENTATION
     Dates: start: 20030901, end: 20050913
  14. MULTI-VITAMINS [Concomitant]
     Indication: PROPHYLAXIS
     Dates: start: 20050607
  15. LORAZEPAM [Concomitant]
     Indication: INSOMNIA
     Dates: start: 20021101, end: 20050913
  16. CLOTRIMAZOLE [Concomitant]
     Indication: FUNGAL INFECTION
     Dosage: 0.1%
     Dates: start: 20031001, end: 20031027
  17. TERBINAFINE HCL [Concomitant]
     Indication: ONYCHOMYCOSIS
     Dates: start: 20031130, end: 20050913
  18. CHLORHEXIDINE HYDROCHLORIDE [Concomitant]
     Indication: NASOPHARYNGITIS
     Dates: start: 20031126, end: 20050913
  19. IDARUBICIN HCL [Concomitant]
     Indication: ACUTE MYELOID LEUKAEMIA
     Dates: start: 20050608, end: 20050610
  20. CYTARABINE [Concomitant]
     Indication: ACUTE MYELOID LEUKAEMIA
     Dates: start: 20050608, end: 20050614
  21. POTASSIUM CHLORIDE [Concomitant]
     Indication: PROPHYLAXIS
     Dates: start: 20050623
  22. MEROPENUM [Concomitant]
     Indication: NEUTROPENIA
     Dates: start: 20050616, end: 20050622
  23. BETAMETHASONE VALERATE [Concomitant]
     Indication: RASH
     Dosage: 0.05%
     Dates: start: 20050616
  24. VANCOMYCIN HYDROCHLORIDE [Concomitant]
     Indication: NEUTROPENIA
     Dates: start: 20050617, end: 20050622
  25. DIPHENHYDRAMINE HYDROCHLORIDE [Concomitant]
     Indication: PROPHYLACTIC CHEMOTHERAPY
     Dates: start: 20050606, end: 20050624
  26. DIPHENHYDRAMINE HYDROCHLORIDE [Concomitant]
     Dates: start: 20050609, end: 20050610
  27. LORAZEPAM [Concomitant]
     Dates: start: 20050614
  28. LORAZEPAM [Concomitant]
     Indication: PROPHYLAXIS
  29. CODEINE SUL TAB [Concomitant]
     Indication: ABDOMINAL PAIN
     Dosage: 30 TO 60 MILLIGRAMS
     Dates: start: 20050614, end: 20050615
  30. MORPHINE SULFATE INJ [Concomitant]
     Indication: ABDOMINAL PAIN
     Dates: start: 20050616, end: 20050616
  31. MORPHINE SULFATE INJ [Concomitant]
     Dates: start: 20050616
  32. HYDROXYZINE [Concomitant]
     Indication: RASH
     Dates: start: 20050616, end: 20050620
  33. OXAZEPAM [Concomitant]
     Indication: INSOMNIA
     Dates: start: 20050611, end: 20050611
  34. OXAZEPAM [Concomitant]
     Indication: PROPHYLAXIS
  35. DEXAMETHASONE [Concomitant]
     Indication: PROPHYLAXIS OF NAUSEA AND VOMITING
     Dates: start: 20050607, end: 20050609
  36. ALLOPURINOL [Concomitant]
     Indication: TUMOUR LYSIS SYNDROME
     Dates: start: 20050607, end: 20050611
  37. ALLOPURINOL [Concomitant]
     Indication: PROPHYLAXIS
  38. HYDROCORTISONE SODIUM SUCCINATE [Concomitant]
     Indication: PROPHYLAXIS OF NAUSEA AND VOMITING
     Dates: start: 20050609, end: 20050610
  39. ACETAMINOPHEN [Concomitant]
     Indication: ABDOMINAL PAIN
     Dates: start: 20050616, end: 20050624
  40. ONDANSETRON [Concomitant]
     Indication: PROPHYLAXIS OF NAUSEA AND VOMITING
     Dates: start: 20050607, end: 20050617
  41. NIFEDIPINE [Concomitant]
     Indication: HYPERTENSION
     Dates: start: 20050624

REACTIONS (1)
  - ACUTE MYELOID LEUKAEMIA [None]
